FAERS Safety Report 4951627-X (Version None)
Quarter: 2006Q1

REPORT INFORMATION
  Report Type: 
  Country: None (occurrence: None)
  Receive Date: 20060320
  Receipt Date: 20060307
  Transmission Date: 20060701
  Serious: Yes (Hospitalization, Other)
  Sender: FDA-Public Use
  Company Number: HQWYE213608MAR06

PATIENT
  Age: 16 Year
  Sex: Male

DRUGS (2)
  1. ADVIL [Suspect]
     Dosage: 400 MG 3X PER 1 DAY
     Route: 048
  2. AMOXICILLIN [Suspect]
     Dosage: 500 MG 4X PER 1 DAY
     Route: 048

REACTIONS (5)
  - BLOOD LACTATE DEHYDROGENASE INCREASED [None]
  - CLOSTRIDIUM COLITIS [None]
  - ENTEROCOLITIS HAEMORRHAGIC [None]
  - HAEMOLYTIC ANAEMIA [None]
  - THROMBOCYTOPENIA [None]
